FAERS Safety Report 16121204 (Version 1)
Quarter: 2019Q1

REPORT INFORMATION
  Report Type: Spontaneous
  Country: FR (occurrence: FR)
  Receive Date: 20190327
  Receipt Date: 20190327
  Transmission Date: 20190418
  Serious: Yes (Life-Threatening)
  Sender: FDA-Public Use
  Company Number: FR-ROCHE-2285977

PATIENT
  Age: 66 Year
  Sex: Female

DRUGS (5)
  1. HERCEPTIN [Suspect]
     Active Substance: TRASTUZUMAB
     Indication: BREAST CANCER
     Dosage: ON 18/OCT/2018, RECEIVED MOST RECENT DOSE OF TRASTUZUMAB.
     Route: 058
     Dates: start: 20171025
  2. ENDOXAN [Suspect]
     Active Substance: CYCLOPHOSPHAMIDE
     Indication: BREAST CANCER
     Dosage: ON 05/OCT/2017, RECEIVED MOST RECENT DOSE OF CYCLOPHOSPHAMIDE.
     Route: 042
     Dates: start: 20170824
  3. PACLITAXEL. [Suspect]
     Active Substance: PACLITAXEL
     Indication: BREAST CANCER
     Dosage: ON 23/NOV/2017, RECEIVED MOST RECENT DOSE OF PACLITAXEL.
     Route: 042
     Dates: start: 20171026
  4. EPIRUBICINE [Suspect]
     Active Substance: EPIRUBICIN
     Indication: BREAST CANCER
     Dosage: ON 05/OCT/2017, RECEIVED MOST RECENT DOSE OF
     Route: 042
     Dates: start: 20170824
  5. FLUOROURACILE [Suspect]
     Active Substance: FLUOROURACIL
     Indication: BREAST CANCER
     Dosage: ON 05/OCT/2017, RECEIVED MOST RECENT DOSE OF
     Route: 042
     Dates: start: 20170824

REACTIONS (1)
  - Acute myeloid leukaemia [Not Recovered/Not Resolved]

NARRATIVE: CASE EVENT DATE: 20190125
